FAERS Safety Report 13194667 (Version 1)
Quarter: 2017Q1

REPORT INFORMATION
  Report Type: Spontaneous
  Country: US (occurrence: US)
  Receive Date: 20170207
  Receipt Date: 20170207
  Transmission Date: 20170428
  Serious: No
  Sender: FDA-Public Use
  Company Number: US-JAZZ-2016-US-018187

PATIENT
  Age: 34 Year
  Sex: Female
  Weight: 50.79 kg

DRUGS (3)
  1. PRIALT [Suspect]
     Active Substance: ZICONOTIDE ACETATE
     Indication: PAIN
     Dosage: 0.096 ?G, QH
     Route: 037
     Dates: start: 201412
  2. PRIALT [Suspect]
     Active Substance: ZICONOTIDE ACETATE
     Dosage: 0.007 ?G, QH (MINIMAL RATE)
     Route: 037
     Dates: start: 20160915
  3. PRIALT [Suspect]
     Active Substance: ZICONOTIDE ACETATE
     Indication: OFF LABEL USE
     Dosage: UNK ?G, QH
     Route: 037
     Dates: start: 201210

REACTIONS (5)
  - Insomnia [Unknown]
  - Headache [Unknown]
  - Diarrhoea [Unknown]
  - Nausea [Unknown]
  - Vertigo [Unknown]

NARRATIVE: CASE EVENT DATE: 20160915
